FAERS Safety Report 7942753-1 (Version None)
Quarter: 2011Q4

REPORT INFORMATION
  Report Type: 
  Country: None (occurrence: None)
  Receive Date: 20111128
  Receipt Date: 20111011
  Transmission Date: 20120403
  Serious: No
  Sender: FDA-Public Use
  Company Number: US-BAYER-2011-099110

PATIENT
  Age: 33 Year
  Sex: Female

DRUGS (1)
  1. ALEVE (CAPLET) [Suspect]
     Indication: DYSMENORRHOEA
     Dosage: 1 DF, ONCE
     Dates: start: 20111001, end: 20111001

REACTIONS (2)
  - NAUSEA [None]
  - CONSTIPATION [None]
